FAERS Safety Report 16531263 (Version 1)
Quarter: 2019Q3

REPORT INFORMATION
  Report Type: Spontaneous
  Country: US (occurrence: US)
  Receive Date: 20190705
  Receipt Date: 20190705
  Transmission Date: 20191004
  Serious: Yes (Other)
  Sender: FDA-Public Use
  Company Number: US-PFIZER INC-2019285131

PATIENT
  Age: 59 Year

DRUGS (1)
  1. VIAGRA [Suspect]
     Active Substance: SILDENAFIL CITRATE
     Dosage: UNK

REACTIONS (7)
  - Cerebrovascular accident [Unknown]
  - Aphasia [Unknown]
  - Back disorder [Unknown]
  - Fall [Unknown]
  - Ankle fracture [Unknown]
  - Aneurysm [Unknown]
  - Coma [Unknown]

NARRATIVE: CASE EVENT DATE: 2005
